FAERS Safety Report 12317366 (Version 1)
Quarter: 2016Q2

REPORT INFORMATION
  Report Type: Spontaneous
  Country: US (occurrence: None)
  Receive Date: 20160428
  Receipt Date: 20160428
  Transmission Date: 20160815
  Serious: No
  Sender: FDA-Public Use
  Company Number: None

PATIENT
  Age: 47 Year
  Sex: Male
  Weight: 67.13 kg

DRUGS (5)
  1. METAPROLOL [Concomitant]
     Active Substance: METOPROLOL
  2. MEN^S ONE A DAY MULTIVITAMIN [Concomitant]
  3. BRILINTA [Suspect]
     Active Substance: TICAGRELOR
     Indication: CORONARY ARTERIAL STENT INSERTION
     Route: 048
     Dates: start: 20160406
  4. CRESTOR [Concomitant]
     Active Substance: ROSUVASTATIN CALCIUM
  5. JANUMET [Concomitant]
     Active Substance: METFORMIN HYDROCHLORIDE\SITAGLIPTIN PHOSPHATE

REACTIONS (4)
  - Insomnia [None]
  - General physical health deterioration [None]
  - Frustration tolerance decreased [None]
  - Impaired work ability [None]

NARRATIVE: CASE EVENT DATE: 20160427
